FAERS Safety Report 7874486-4 (Version None)
Quarter: 2011Q4

REPORT INFORMATION
  Report Type: 
  Country: None (occurrence: None)
  Receive Date: 20111030
  Receipt Date: 20110520
  Transmission Date: 20120403
  Serious: No
  Sender: FDA-Public Use
  Company Number: US-AMGEN-USASP2011026349

PATIENT
  Age: 54 Year
  Sex: Female
  Weight: 63.492 kg

DRUGS (10)
  1. HYDROCODONE BITARTRATE AND ACETAMINOPHEN [Concomitant]
     Dosage: UNK
     Route: 048
  2. METHOTREXATE [Concomitant]
     Dosage: 2.5 MG, UNK
     Route: 048
  3. PRIMIDONE [Concomitant]
     Dosage: 250 MG, UNK
     Route: 048
  4. CALCIUM [Concomitant]
     Dosage: UNK
     Route: 048
  5. ENBREL [Suspect]
     Indication: RHEUMATOID ARTHRITIS
     Dosage: 50 MG, QWK
     Route: 058
  6. ENBREL [Suspect]
     Indication: PSORIATIC ARTHROPATHY
  7. FOLIC ACID [Concomitant]
     Dosage: 1 MG, UNK
     Route: 048
  8. MULTIVITAMIN                       /00097801/ [Concomitant]
     Dosage: UNK
     Route: 048
  9. DIPHENHYDRAMIN [Concomitant]
     Dosage: 25 MG, UNK
     Route: 048
  10. VITAMIN D [Concomitant]
     Dosage: 1000 UNIT, UNK
     Route: 048

REACTIONS (1)
  - PRURITUS GENERALISED [None]
